FAERS Safety Report 26206741 (Version 1)
Quarter: 2025Q4

REPORT INFORMATION
  Report Type: Spontaneous
  Country: US (occurrence: US)
  Receive Date: 20251229
  Receipt Date: 20251229
  Transmission Date: 20260118
  Serious: No
  Sender: DECIPHERA PHARMACEUTICALS
  Company Number: US-DECIPHERA PHARMACEUTICALS LLC-2025US001550

PATIENT
  Sex: Male

DRUGS (2)
  1. ROMVIMZA [Suspect]
     Active Substance: VIMSELTINIB
     Indication: Product used for unknown indication
     Dosage: UNK
  2. ROMVIMZA [Suspect]
     Active Substance: VIMSELTINIB
     Dosage: UNK, DOSE REDUCTION

REACTIONS (1)
  - Brain fog [Unknown]
